FAERS Safety Report 11456606 (Version 1)
Quarter: 2015Q3

REPORT INFORMATION
  Report Type: Spontaneous
  Country: US (occurrence: US)
  Receive Date: 20150903
  Receipt Date: 20150903
  Transmission Date: 20151125
  Serious: Yes (Other)
  Sender: FDA-Public Use
  Company Number: US-TAKEDA-2014TUS002132

PATIENT

DRUGS (7)
  1. STARLIX [Concomitant]
     Active Substance: NATEGLINIDE
     Dosage: 240 MG, UNK
     Dates: start: 200706, end: 200801
  2. DIABETA                            /00145301/ [Concomitant]
     Dosage: 5 MG, UNK
     Dates: start: 200602, end: 200705
  3. AMARYL [Concomitant]
     Active Substance: GLIMEPIRIDE
     Dosage: 4 MG, UNK
     Dates: start: 200802, end: 200811
  4. METFORMIN [Concomitant]
     Active Substance: METFORMIN HYDROCHLORIDE
     Dosage: 2000 MG, UNK
     Dates: start: 200602
  5. JANUVIA [Concomitant]
     Active Substance: SITAGLIPTIN PHOSPHATE
     Dosage: 100 MG, UNK
     Dates: start: 200807
  6. ACTOS [Suspect]
     Active Substance: PIOGLITAZONE HYDROCHLORIDE
     Indication: TYPE 2 DIABETES MELLITUS
     Dosage: 15MG, 30MG, 45MG
     Route: 048
     Dates: start: 200607, end: 200807
  7. PRANDIN                            /01393601/ [Concomitant]
     Dosage: 1 MG, UNK
     Dates: start: 200807

REACTIONS (1)
  - Bladder cancer [Unknown]

NARRATIVE: CASE EVENT DATE: 20071228
